FAERS Safety Report 10699557 (Version 1)
Quarter: 2015Q1

REPORT INFORMATION
  Report Type: Spontaneous
  Country: US (occurrence: US)
  Receive Date: 20150109
  Receipt Date: 20150109
  Transmission Date: 20150721
  Serious: No
  Sender: FDA-Public Use
  Company Number: US-OPTIMER-20140128

PATIENT
  Age: 5 Year
  Sex: Male
  Weight: 20.6 kg

DRUGS (1)
  1. DIFICID [Suspect]
     Active Substance: FIDAXOMICIN
     Indication: CLOSTRIDIUM DIFFICILE COLITIS
     Dosage: 200 MG, BID
     Route: 048
     Dates: start: 20140328, end: 20140411

REACTIONS (4)
  - Hepatic enzyme increased [Not Recovered/Not Resolved]
  - Off label use [Recovered/Resolved]
  - Prothrombin time ratio increased [Unknown]
  - Product use issue [Recovered/Resolved]

NARRATIVE: CASE EVENT DATE: 20140328
